FAERS Safety Report 9535770 (Version 4)
Quarter: 2013Q4

REPORT INFORMATION
  Report Type: Spontaneous
  Country: JP (occurrence: JP)
  Receive Date: 20130919
  Receipt Date: 20131101
  Transmission Date: 20140711
  Serious: Yes (Death, Hospitalization, Disabling)
  Sender: FDA-Public Use
  Company Number: JP-AMGEN-JPNSP2013061305

PATIENT
  Age: 91 Year
  Sex: Female
  Weight: 41 kg

DRUGS (14)
  1. PRALIA [Suspect]
     Indication: OSTEOPOROSIS
     Dosage: 60 MG, UNK
     Route: 058
     Dates: start: 20130710, end: 20130710
  2. ALLOPURINOL [Concomitant]
     Dosage: 50 MG, QD
     Route: 048
  3. SPIRONOLACTONE [Concomitant]
     Route: 048
  4. DONEPEZIL HYDROCHLORIDE [Concomitant]
     Route: 048
  5. FUROSEMIDE [Concomitant]
     Route: 048
  6. CELECOX [Concomitant]
     Dosage: 100 MG, BID
     Route: 048
  7. FAMOTIDINE [Concomitant]
     Dosage: 20 MG, BID
     Route: 048
  8. SOLDACTONE [Concomitant]
     Route: 042
     Dates: start: 20130710, end: 20130730
  9. LASIX                              /00032601/ [Concomitant]
     Dosage: 20 MG, QD
     Route: 042
     Dates: start: 20130710
  10. OMEGACIN [Concomitant]
     Dosage: 300 MG, BID
     Route: 042
     Dates: start: 20130717, end: 20130723
  11. ISOTONIC SODIUM CHLORIDE SOLUTION [Concomitant]
     Dosage: 100 ML, BID
     Route: 042
     Dates: start: 20130717, end: 20130723
  12. DONEPEZIL HYDROCHLORIDE OD [Concomitant]
     Route: 048
  13. LASIX [Concomitant]
     Route: 042
     Dates: start: 20130710
  14. ISOTONIC SODIUM CHLORIDE SOLUTION KIT [Concomitant]
     Route: 042
     Dates: start: 20130717, end: 20130723

REACTIONS (3)
  - Humerus fracture [Not Recovered/Not Resolved]
  - Sepsis [Fatal]
  - Hypocalcaemia [Recovering/Resolving]
